FAERS Safety Report 23303628 (Version 1)
Quarter: 2023Q4

REPORT INFORMATION
  Report Type: Spontaneous
  Country: US (occurrence: US)
  Receive Date: 20231215
  Receipt Date: 20231215
  Transmission Date: 20240110
  Serious: Yes (Other)
  Sender: FDA-Public Use
  Company Number: US-SANDOZ-SDZ2023US067490

PATIENT
  Age: 62 Year
  Sex: Male

DRUGS (3)
  1. TESTOSTERONE [Suspect]
     Active Substance: TESTOSTERONE
     Indication: Hormone replacement therapy
     Dosage: 100 MG(TWICE WEEKLY)
     Route: 030
  2. ANASTROZOLE [Concomitant]
     Active Substance: ANASTROZOLE
     Indication: Hormone replacement therapy
     Dosage: 0.5 MG(ONCE WEEKLY)
     Route: 065
  3. LISINOPRIL [Concomitant]
     Active Substance: LISINOPRIL
     Indication: Product used for unknown indication
     Dosage: 10 MG, QD
     Route: 065

REACTIONS (2)
  - Polycythaemia [Recovered/Resolved]
  - Mesenteric vein thrombosis [Unknown]
